FAERS Safety Report 9894084 (Version 1)
Quarter: 2014Q1

REPORT INFORMATION
  Report Type: Spontaneous
  Country: AU (occurrence: AU)
  Receive Date: 20140213
  Receipt Date: 20140213
  Transmission Date: 20141002
  Serious: Yes (Death)
  Sender: FDA-Public Use
  Company Number: PHHY2014AU014165

PATIENT
  Age: 52 Year
  Sex: Male

DRUGS (14)
  1. METOCLOPRAMIDE [Suspect]
     Dosage: 0.2 MG/L, UNK
  2. DULOXETINE [Interacting]
  3. ARIPIPRAZOLE [Interacting]
     Dosage: 0.2 MG/L, UNK
  4. CHLORPHENIRAMINE [Interacting]
     Dosage: 0.02 MG/L, UNK
  5. CODEINE PHOSPHATE [Interacting]
     Dosage: 0.04 MG/L, UNK
  6. DIAZEPAM [Interacting]
     Dosage: 0.4 MG/L, UNK
  7. LAMOTRIGINE [Interacting]
     Dosage: 3 MG/L, UNK
  8. MORPHINE [Interacting]
     Dosage: 2.3 MG/L, UNK
  9. METHAMPHETAMINE [Interacting]
     Dosage: 0.05 MG/L, UNK
  10. NITRAZEPAM [Interacting]
     Dosage: 0.01 MG/L, UNK
  11. PARACETAMOL 1A PHARMA [Interacting]
     Dosage: 20 MG/L, UNK
  12. PHOLCODINE [Interacting]
     Dosage: 0.7 MG/L, UNK
  13. PROPRANOLOL [Interacting]
     Dosage: 1.1 MG/L, UNK
  14. PROPOXYPHENE HYDROCHLORIDE [Interacting]
     Dosage: 0.1 MG/L, UNK

REACTIONS (4)
  - Toxicity to various agents [Fatal]
  - Cardiomegaly [Fatal]
  - Arteriosclerosis coronary artery [Fatal]
  - Coronary artery stenosis [Fatal]
